FAERS Safety Report 13880519 (Version 1)
Quarter: 2017Q3

REPORT INFORMATION
  Report Type: Other
  Country: FR (occurrence: FR)
  Receive Date: 20170818
  Receipt Date: 20170818
  Transmission Date: 20171127
  Serious: Yes (Other)
  Sender: FDA-Public Use
  Company Number: FR-ASTELLAS-2017US032502

PATIENT
  Age: 19 Year
  Sex: Female

DRUGS (5)
  1. SOLUPRED                           /00016201/ [Suspect]
     Active Substance: PREDNISOLONE
     Indication: IMMUNOSUPPRESSION
     Route: 065
     Dates: start: 201109, end: 20120610
  2. COVERAM [Concomitant]
     Active Substance: AMLODIPINE\PERINDOPRIL
     Indication: HYPERTENSION
     Route: 065
     Dates: start: 201109, end: 20111102
  3. ELISOR [Suspect]
     Active Substance: PRAVASTATIN SODIUM
     Indication: HEART TRANSPLANT
     Route: 065
     Dates: start: 201109, end: 20120610
  4. ADVAGRAF [Suspect]
     Active Substance: TACROLIMUS
     Indication: HEART TRANSPLANT
     Route: 065
     Dates: start: 201109, end: 20120610
  5. AMLOR [Suspect]
     Active Substance: AMLODIPINE BESYLATE
     Indication: HYPERTENSION
     Route: 065
     Dates: start: 20111102, end: 20120610

REACTIONS (3)
  - Off label use [Unknown]
  - Umbilical cord around neck [Unknown]
  - Exposure during pregnancy [Unknown]
